FAERS Safety Report 13545398 (Version 1)
Quarter: 2017Q2

REPORT INFORMATION
  Report Type: Spontaneous
  Country: US (occurrence: US)
  Receive Date: 20170513
  Receipt Date: 20170513
  Transmission Date: 20170830
  Serious: Yes (Life-Threatening, Disabling, Other)
  Sender: FDA-Public Use
  Company Number: None

PATIENT
  Age: 39 Year
  Sex: Female
  Weight: 79.2 kg

DRUGS (13)
  1. ACYCLOVIR. [Concomitant]
     Active Substance: ACYCLOVIR
  2. CHLORMEPROZINE [Concomitant]
  3. SUCRALFATE. [Suspect]
     Active Substance: SUCRALFATE
     Indication: ULCER
     Dosage: ?          QUANTITY:1 TABLET(S);?
     Route: 048
  4. OMEPRIZOLE [Concomitant]
  5. PRAVASTATIN. [Concomitant]
     Active Substance: PRAVASTATIN
  6. ZETIA [Concomitant]
     Active Substance: EZETIMIBE
  7. MELATONIN [Concomitant]
     Active Substance: MELATONIN
  8. MULTI VITAMINS FOR WOMEN [Concomitant]
  9. TYLENOL [Concomitant]
     Active Substance: ACETAMINOPHEN
  10. FISH OIL [Concomitant]
     Active Substance: FISH OIL
  11. SUCRALFATE. [Suspect]
     Active Substance: SUCRALFATE
     Indication: GASTROOESOPHAGEAL REFLUX DISEASE
     Dosage: ?          QUANTITY:1 TABLET(S);?
     Route: 048
  12. CITLAPRAM [Concomitant]
  13. XANAX [Concomitant]
     Active Substance: ALPRAZOLAM

REACTIONS (9)
  - Headache [None]
  - Dyspnoea [None]
  - Confusional state [None]
  - Vertigo [None]
  - Loss of consciousness [None]
  - Fall [None]
  - Dizziness [None]
  - Tinnitus [None]
  - Respiratory rate decreased [None]

NARRATIVE: CASE EVENT DATE: 20170505
